FAERS Safety Report 7533658-9 (Version None)
Quarter: 2011Q2

REPORT INFORMATION
  Report Type: 
  Country: None (occurrence: None)
  Receive Date: 20110608
  Receipt Date: 20060323
  Transmission Date: 20111010
  Serious: Yes (Hospitalization)
  Sender: FDA-Public Use
  Company Number: PHHO2006JP04998

PATIENT
  Sex: Male

DRUGS (3)
  1. DIGOXIN [Concomitant]
     Indication: ATRIAL FIBRILLATION
     Dates: start: 20031104
  2. ASPIRIN [Concomitant]
     Indication: ATRIAL FIBRILLATION
     Dates: start: 20031108
  3. DIOVAN [Suspect]
     Indication: HYPERTENSION
     Dosage: 80 MG, QD
     Route: 048
     Dates: start: 20031104, end: 20031122

REACTIONS (1)
  - COLONIC POLYP [None]
